FAERS Safety Report 23743600 (Version 4)
Quarter: 2024Q4

REPORT INFORMATION
  Report Type: Report from Study
  Country: BR (occurrence: BR)
  Receive Date: 20240415
  Receipt Date: 20241104
  Transmission Date: 20250115
  Serious: Yes (Other)
  Sender: NOVARTIS
  Company Number: BR-002147023-NVSC2023BR119749

PATIENT
  Age: 69 Year
  Sex: Female

DRUGS (4)
  1. KISQALI [Suspect]
     Active Substance: RIBOCICLIB
     Indication: Breast cancer female
     Dosage: 3 DOSAGE FORM, UNKNOWN
     Route: 065
  2. KISQALI [Suspect]
     Active Substance: RIBOCICLIB
     Dosage: 2 DOSAGE FORM, UNKNOWN
     Route: 065
  3. KISQALI [Suspect]
     Active Substance: RIBOCICLIB
     Dosage: 1 TABLET, QD
     Route: 065
     Dates: start: 20240406
  4. KISQALI [Suspect]
     Active Substance: RIBOCICLIB
     Dosage: 1 DOSAGE FORM, QD
     Route: 065

REACTIONS (9)
  - Hepatic infection [Unknown]
  - Retching [Recovering/Resolving]
  - Hepatic function abnormal [Recovering/Resolving]
  - Laboratory test abnormal [Recovered/Resolved]
  - Malaise [Recovering/Resolving]
  - Pain in extremity [Unknown]
  - Fatigue [Unknown]
  - Dizziness [Recovering/Resolving]
  - Vomiting [Recovering/Resolving]

NARRATIVE: CASE EVENT DATE: 20230601
